FAERS Safety Report 8562793 (Version 2)
Quarter: 2012Q4

REPORT INFORMATION
  Report Type: 
  Country: US (occurrence: US)
  Receive Date: 20120515
  Receipt Date: 20121005
  Transmission Date: 20130627
  Serious: Yes (Hospitalization)
  Sender: FDA-Public Use
  Company Number: US-ASTRAZENECA-2012SE29699

PATIENT
  Age: 56 Year
  Sex: Female

DRUGS (2)
  1. SYMBICORT PMDI [Suspect]
     Dosage: Unknown
     Route: 055
  2. NEXIUM [Suspect]
     Route: 048

REACTIONS (5)
  - Bronchitis [Unknown]
  - Chronic obstructive pulmonary disease [Unknown]
  - Aphagia [Unknown]
  - Dyspepsia [Unknown]
  - Drug dose omission [Unknown]
